FAERS Safety Report 23290780 (Version 1)
Quarter: 2023Q4

REPORT INFORMATION
  Report Type: Spontaneous
  Country: NL (occurrence: NL)
  Receive Date: 20231213
  Receipt Date: 20231213
  Transmission Date: 20240110
  Serious: Yes (Other)
  Sender: FDA-Public Use
  Company Number: NL-LRB-00927916

PATIENT
  Age: 64 Year
  Sex: Male

DRUGS (1)
  1. AMOXICILLIN\CLAVULANIC ACID [Suspect]
     Active Substance: AMOXICILLIN\CLAVULANIC ACID
     Indication: Otorrhoea
     Dosage: 1 DOSAGE FORM (3X PER DAG 1 STUK)
     Route: 065
     Dates: start: 20231010

REACTIONS (1)
  - Hepatitis cholestatic [Unknown]
